FAERS Safety Report 10351567 (Version 2)
Quarter: 2014Q3

REPORT INFORMATION
  Report Type: Spontaneous
  Country: GB (occurrence: GB)
  Receive Date: 20140730
  Receipt Date: 20140730
  Transmission Date: 20150326
  Serious: Yes (Other)
  Sender: FDA-Public Use
  Company Number: GB-AMGEN-GBRSP2014046197

PATIENT
  Sex: Female

DRUGS (1)
  1. PROLIA [Suspect]
     Active Substance: DENOSUMAB
     Indication: OSTEOPOROSIS POSTMENOPAUSAL
     Dosage: 60 MG, Q6MO
     Route: 065

REACTIONS (8)
  - Sciatica [Unknown]
  - Skin fissures [Unknown]
  - Pain in extremity [Unknown]
  - White blood cell count decreased [Unknown]
  - Cellulitis [Unknown]
  - Urinary tract infection [Unknown]
  - Nausea [Unknown]
  - Skin infection [Unknown]
